FAERS Safety Report 6463882-8 (Version None)
Quarter: 2009Q4

REPORT INFORMATION
  Report Type: 
  Country: None (occurrence: None)
  Receive Date: 20091201
  Receipt Date: 20091120
  Transmission Date: 20100525
  Serious: Yes (Hospitalization)
  Sender: FDA-Public Use
  Company Number: RO-ROCHE-670033

PATIENT
  Sex: Female

DRUGS (1)
  1. PEGASYS [Suspect]
     Route: 058
     Dates: start: 20090422

REACTIONS (1)
  - PULMONARY TUBERCULOSIS [None]
